FAERS Safety Report 12091377 (Version 2)
Quarter: 2016Q1

REPORT INFORMATION
  Report Type: Spontaneous
  Country: US (occurrence: US)
  Receive Date: 20160218
  Receipt Date: 20160222
  Transmission Date: 20160526
  Serious: Yes (Death, Other)
  Sender: FDA-Public Use
  Company Number: US-PURDUE-USA-2016-0129081

PATIENT
  Age: 9 Year
  Sex: Male

DRUGS (1)
  1. OXYCODONE HCL LIQUID [Suspect]
     Active Substance: OXYCODONE HYDROCHLORIDE
     Indication: PRODUCT USED FOR UNKNOWN INDICATION
     Dosage: 4.8 ML, Q4H PRN
     Route: 048

REACTIONS (6)
  - Fatigue [Unknown]
  - Death [Fatal]
  - Unresponsive to stimuli [Unknown]
  - Dyspnoea [Unknown]
  - Inappropriate schedule of drug administration [Unknown]
  - Somnolence [Unknown]

NARRATIVE: CASE EVENT DATE: 20160209
